FAERS Safety Report 19284359 (Version 1)
Quarter: 2021Q2

REPORT INFORMATION
  Report Type: Spontaneous
  Country: US (occurrence: US)
  Receive Date: 20210521
  Receipt Date: 20210521
  Transmission Date: 20210717
  Serious: No
  Sender: FDA-Public Use
  Company Number: None

PATIENT
  Sex: Female

DRUGS (1)
  1. PEMAZYRE [Suspect]
     Active Substance: PEMIGATINIB
     Indication: CHOLANGIOCARCINOMA
     Route: 048
     Dates: start: 20210125

REACTIONS (5)
  - Paraesthesia [None]
  - Weight decreased [None]
  - Asthenia [None]
  - Somnolence [None]
  - Vomiting [None]
